FAERS Safety Report 6654679-4 (Version None)
Quarter: 2010Q1

REPORT INFORMATION
  Report Type: 
  Country: None (occurrence: None)
  Receive Date: 20100326
  Receipt Date: 20100319
  Transmission Date: 20100710
  Serious: Yes (Hospitalization)
  Sender: FDA-Public Use
  Company Number: AT-MERCK-1003AUT00009

PATIENT
  Age: 70 Year
  Sex: Female
  Weight: 110 kg

DRUGS (2)
  1. PRIMAXIN [Suspect]
     Indication: URINARY TRACT INFECTION
     Route: 041
     Dates: start: 20100208, end: 20100211
  2. TEA [Concomitant]
     Indication: URINARY TRACT INFECTION
     Route: 065
     Dates: end: 20100201

REACTIONS (1)
  - DRUG INEFFECTIVE [None]
